FAERS Safety Report 15628572 (Version 1)
Quarter: 2018Q4

REPORT INFORMATION
  Report Type: Spontaneous
  Country: FR (occurrence: FR)
  Receive Date: 20181116
  Receipt Date: 20181116
  Transmission Date: 20190205
  Serious: Yes (Hospitalization)
  Sender: FDA-Public Use
  Company Number: FR-LPDUSPRD-20182127

PATIENT
  Age: 9 Month
  Sex: Male
  Weight: 6.5 kg

DRUGS (1)
  1. FERINJECT [Suspect]
     Active Substance: FERRIC CARBOXYMALTOSE
     Dosage: 1 GM,1 IN 1 TOTAL
     Route: 042
     Dates: start: 20180827, end: 20180827

REACTIONS (4)
  - Accidental overdose [Unknown]
  - Blood iron increased [Recovered/Resolved]
  - Product use issue [Unknown]
  - Skin discolouration [Recovered/Resolved]

NARRATIVE: CASE EVENT DATE: 20180827
